FAERS Safety Report 5370621-0 (Version None)
Quarter: 2007Q2

REPORT INFORMATION
  Report Type: 
  Country: None (occurrence: None)
  Receive Date: 20070622
  Receipt Date: 20000612
  Transmission Date: 20071010
  Serious: Yes (Other)
  Sender: FDA-Public Use
  Company Number: 2007JP002799

PATIENT
  Sex: Male

DRUGS (3)
  1. PROGRAF [Suspect]
     Indication: RHEUMATOID ARTHRITIS
     Dosage: 3 MG, UNKNOWN/D, ORAL
     Route: 048
  2. PREDNISOLONE [Concomitant]
  3. LORCAM (LORNOXICAM) FORMULATION [Concomitant]

REACTIONS (1)
  - INTESTINAL ISCHAEMIA [None]
